FAERS Safety Report 8875567 (Version 1)
Quarter: 2012Q4

REPORT INFORMATION
  Report Type: 
  Country: US (occurrence: US)
  Receive Date: 20121023
  Receipt Date: 20121023
  Transmission Date: 20130627
  Serious: Yes (Other)
  Sender: FDA-Public Use
  Company Number: PHEH2012US020633

PATIENT
  Sex: Female

DRUGS (7)
  1. DIOVAN [Suspect]
  2. CLIMEPIRIDE [Concomitant]
  3. JANUVIA [Concomitant]
  4. HCT [Concomitant]
     Dosage: 12.5 mg
  5. FISH OIL [Concomitant]
  6. BABY ASPIRIN [Concomitant]
  7. GLUCOSAMINE CHONDROITIN [Concomitant]

REACTIONS (2)
  - Diabetes mellitus [Unknown]
  - Hypertension [Unknown]
